FAERS Safety Report 24831608 (Version 1)
Quarter: 2025Q1

REPORT INFORMATION
  Report Type: Spontaneous
  Country: US (occurrence: US)
  Receive Date: 20250110
  Receipt Date: 20250110
  Transmission Date: 20250408
  Serious: Yes (Other)
  Sender: TEVA
  Company Number: US-TEVA-VS-3221619

PATIENT
  Age: 61 Year
  Sex: Male
  Weight: 51.256 kg

DRUGS (3)
  1. TESTOSTERONE [Suspect]
     Active Substance: TESTOSTERONE
     Indication: Blood testosterone decreased
     Dosage: TESTOSTERONE CYPIONATE WILL GET 125 MG OF TESTOSTERONE IN 7 OR 8 DAYS
     Route: 065
  2. TESTOSTERONE [Suspect]
     Active Substance: TESTOSTERONE
     Indication: Blood testosterone decreased
     Dosage: (1-3/4ML) PER WEEK
     Route: 065
  3. BETA SITOSTEROL [Concomitant]
     Indication: Hypertension

REACTIONS (16)
  - Dementia [Unknown]
  - Elbow deformity [Unknown]
  - Drug ineffective [Unknown]
  - Cardiac discomfort [Unknown]
  - Impaired driving ability [Unknown]
  - Toxicity to various agents [Unknown]
  - Skin odour abnormal [Unknown]
  - Sexual abuse [Unknown]
  - Localised infection [Unknown]
  - Product temperature excursion issue [Unknown]
  - White blood cell count increased [Unknown]
  - Physical abuse [Unknown]
  - Infection [Unknown]
  - Sperm concentration decreased [Unknown]
  - Psychological abuse [Unknown]
  - Drug dependence [Unknown]
